FAERS Safety Report 13552701 (Version 1)
Quarter: 2017Q2

REPORT INFORMATION
  Report Type: Spontaneous
  Country: US (occurrence: US)
  Receive Date: 20170517
  Receipt Date: 20170517
  Transmission Date: 20170830
  Serious: No
  Sender: FDA-Public Use
  Company Number: US-ASTRAZENECA-2017SE51501

PATIENT
  Sex: Female
  Weight: 79.4 kg

DRUGS (3)
  1. SYMBICORT [Suspect]
     Active Substance: BUDESONIDE\FORMOTEROL FUMARATE DIHYDRATE
     Indication: ASTHMA
     Dosage: 160/4.5 MCG TWO INHALATIONS TWICE A DAY
     Route: 055
  2. PROAIR HFA [Concomitant]
     Active Substance: ALBUTEROL SULFATE
     Indication: INHALATION THERAPY
  3. SYMBICORT [Suspect]
     Active Substance: BUDESONIDE\FORMOTEROL FUMARATE DIHYDRATE
     Indication: ASTHMA
     Dosage: 80/4.5MCG, UNKNOWN UNKNOWN
     Route: 055
     Dates: start: 201705

REACTIONS (8)
  - Dyspnoea [Unknown]
  - Off label use [Unknown]
  - Cataract [Unknown]
  - Product use issue [Unknown]
  - Asthma [Unknown]
  - Viral upper respiratory tract infection [Unknown]
  - Visual impairment [Recovering/Resolving]
  - Cough [Unknown]
